FAERS Safety Report 19917048 (Version 2)
Quarter: 2021Q4

REPORT INFORMATION
  Report Type: Report from Study
  Country: None (occurrence: IL)
  Receive Date: 20211005
  Receipt Date: 20211008
  Transmission Date: 20220303
  Serious: Yes (Death, Hospitalization)
  Sender: FDA-Public Use
  Company Number: IL-ABBVIE-21K-082-4106653-00

PATIENT
  Age: 84 Year
  Sex: Male
  Weight: 72 kg

DRUGS (22)
  1. VENETOCLAX [Suspect]
     Active Substance: VENETOCLAX
     Indication: Acute myeloid leukaemia
     Dosage: RAMP UP
     Route: 048
     Dates: start: 20200930, end: 20200930
  2. VENETOCLAX [Suspect]
     Active Substance: VENETOCLAX
     Dosage: RAMP UP
     Route: 048
     Dates: start: 20201001, end: 20201001
  3. VENETOCLAX [Suspect]
     Active Substance: VENETOCLAX
     Dosage: INTERRUPTION
     Route: 048
     Dates: start: 20201002, end: 20201212
  4. VENETOCLAX [Suspect]
     Active Substance: VENETOCLAX
     Dosage: INTERRUPTION
     Route: 048
     Dates: start: 20210103, end: 20210123
  5. VENETOCLAX [Suspect]
     Active Substance: VENETOCLAX
     Route: 048
     Dates: start: 20210314, end: 20210327
  6. VENETOCLAX [Suspect]
     Active Substance: VENETOCLAX
     Route: 048
     Dates: start: 20210420, end: 20210503
  7. AZACITIDINE [Suspect]
     Active Substance: AZACITIDINE
     Indication: Product used for unknown indication
     Dosage: CYCLE 1
     Route: 058
     Dates: start: 20200930, end: 20201006
  8. AZACITIDINE [Suspect]
     Active Substance: AZACITIDINE
     Dosage: CYCLE 2
     Route: 058
     Dates: start: 20201115, end: 20201123
  9. AZACITIDINE [Suspect]
     Active Substance: AZACITIDINE
     Dosage: CYCLE 3
     Route: 058
     Dates: start: 20210103, end: 20210111
  10. AZACITIDINE [Suspect]
     Active Substance: AZACITIDINE
     Dosage: CYCLE 4
     Route: 058
     Dates: start: 20210314, end: 20210322
  11. AZACITIDINE [Suspect]
     Active Substance: AZACITIDINE
     Dosage: CYCLE 5
     Route: 058
     Dates: start: 20210420, end: 20210428
  12. STATOR [Concomitant]
     Indication: Hypercholesterolaemia
     Dates: start: 20200717
  13. TAMSULOSIN HYDROCHLORIDE [Concomitant]
     Active Substance: TAMSULOSIN HYDROCHLORIDE
     Indication: Dysuria
     Dates: start: 20081109
  14. JARDIANCE [Concomitant]
     Active Substance: EMPAGLIFLOZIN
     Indication: Diabetes mellitus
     Dates: start: 20190117
  15. REPAGLINIDE [Concomitant]
     Active Substance: REPAGLINIDE
     Indication: Diabetes mellitus
     Dates: start: 20160222
  16. METFORMIN [Concomitant]
     Active Substance: METFORMIN HYDROCHLORIDE
     Indication: Diabetes mellitus
     Dates: start: 20081130
  17. DULAGLUTIDE [Concomitant]
     Active Substance: DULAGLUTIDE
     Indication: Diabetes mellitus
     Dates: start: 20190124
  18. FERROUS SULFATE [Concomitant]
     Active Substance: FERROUS SULFATE
     Indication: Prophylaxis
     Dates: start: 20180329
  19. BISOPROLOL FUMARATE [Concomitant]
     Active Substance: BISOPROLOL FUMARATE
     Indication: Hypertension
     Dates: start: 20200810
  20. ALLOPURINOL [Concomitant]
     Active Substance: ALLOPURINOL
     Indication: Prophylaxis
     Dates: start: 20200925
  21. PFIZER-BIONTECH COVID-19 VACCINE [Concomitant]
     Active Substance: TOZINAMERAN
     Indication: COVID-19 immunisation
     Route: 030
     Dates: start: 20210211, end: 20210211
  22. PFIZER-BIONTECH COVID-19 VACCINE [Concomitant]
     Active Substance: TOZINAMERAN
     Route: 030
     Dates: start: 20210304, end: 20210304

REACTIONS (2)
  - Septic shock [Fatal]
  - Febrile neutropenia [Recovered/Resolved]

NARRATIVE: CASE EVENT DATE: 20210906
